FAERS Safety Report 8481632-0 (Version None)
Quarter: 2012Q3

REPORT INFORMATION
  Report Type: 
  Country: None (occurrence: None)
  Receive Date: 20120702
  Receipt Date: 20120621
  Transmission Date: 20120928
  Serious: Yes (Hospitalization, Other)
  Sender: FDA-Public Use
  Company Number: AU-CELGENEUS-008-21880-10120010

PATIENT
  Sex: Male
  Weight: 82.5 kg

DRUGS (14)
  1. ASPIRIN [Concomitant]
     Route: 048
     Dates: start: 20101112
  2. MICARDIS [Concomitant]
     Indication: HYPERTENSION
     Route: 048
     Dates: start: 20010101
  3. CALCIUM CARBONATE [Concomitant]
     Indication: HYPOCALCAEMIA
     Route: 048
     Dates: start: 20100930
  4. URAL [Concomitant]
     Indication: PROPHYLAXIS URINARY TRACT INFECTION
     Route: 048
     Dates: start: 20101104, end: 20101104
  5. NOROXIN [Concomitant]
     Indication: PROPHYLAXIS URINARY TRACT INFECTION
     Route: 048
     Dates: start: 20101102, end: 20101102
  6. DEXAMETHASONE [Suspect]
     Indication: MULTIPLE MYELOMA
     Route: 065
     Dates: start: 20100514
  7. OMEPRAZOLE (PRISOLEC) [Concomitant]
     Route: 048
     Dates: start: 20011101
  8. WARFARIN SODIUM [Concomitant]
     Route: 048
     Dates: start: 20100201, end: 20100907
  9. BACTRIM [Concomitant]
     Indication: PROPHYLAXIS
     Route: 048
     Dates: start: 20100501
  10. ASPIRIN [Concomitant]
     Route: 048
     Dates: start: 20100908, end: 20101025
  11. PARACETAMOL [Concomitant]
     Indication: PAIN PROPHYLAXIS
     Route: 041
     Dates: start: 20101102, end: 20101102
  12. REVLIMID [Suspect]
     Indication: MULTIPLE MYELOMA
     Dosage: 15 MILLIGRAM
     Route: 048
     Dates: start: 20100514
  13. COLGOUT [Concomitant]
     Indication: GOUT
     Route: 048
     Dates: start: 20100930
  14. LIPITOR [Concomitant]
     Indication: HYPERLIPIDAEMIA
     Route: 048
     Dates: start: 20010101

REACTIONS (1)
  - PROSTATE CANCER [None]
